FAERS Safety Report 5509542-9 (Version None)
Quarter: 2007Q4

REPORT INFORMATION
  Report Type: 
  Country: None (occurrence: None)
  Receive Date: 20071029
  Receipt Date: 20070813
  Transmission Date: 20080405
  Serious: No
  Sender: FDA-Public Use
  Company Number: 012954

PATIENT
  Age: 55 Year
  Sex: Female

DRUGS (16)
  1. PRIALT [Suspect]
     Indication: BACK PAIN
     Dosage: SEE IMAGE
     Route: 037
     Dates: start: 20050101
  2. PRIALT [Suspect]
     Indication: NEURALGIA
     Dosage: SEE IMAGE
     Route: 037
     Dates: start: 20050101
  3. CARDIZEM [Concomitant]
  4. PRILOSEC [Concomitant]
  5. CELEBREX [Concomitant]
  6. CLONAZEPAM [Concomitant]
  7. ESTRADIOL [Concomitant]
  8. DILTIAZEM [Concomitant]
  9. LISINOPRIL/HCTZ (HYDROCHLOROTHIAZIDE, LISINOPRIL) [Concomitant]
  10. GABAPENTIN [Concomitant]
  11. TRAMADOL HCL [Concomitant]
  12. NITROQUIC (GLYCERYL TRINITRATE) [Concomitant]
  13. ALBUTEROL /00139501/ (SALBUTAMOL) [Concomitant]
  14. LEVAQUIN [Concomitant]
  15. DOXYCYCLINE [Concomitant]
  16. ERYTHROMYCIN [Concomitant]

REACTIONS (5)
  - ALOPECIA [None]
  - AMNESIA [None]
  - DIZZINESS POSTURAL [None]
  - HALLUCINATIONS, MIXED [None]
  - IRRITABILITY [None]
